FAERS Safety Report 17828317 (Version 1)
Quarter: 2020Q2

REPORT INFORMATION
  Report Type: Spontaneous
  Country: TR (occurrence: TR)
  Receive Date: 20200527
  Receipt Date: 20200527
  Transmission Date: 20200714
  Serious: Yes (Other)
  Sender: FDA-Public Use
  Company Number: TR-GLAXOSMITHKLINE-TR2020TRK086947

PATIENT

DRUGS (1)
  1. ZOVIRAX [Suspect]
     Active Substance: ACYCLOVIR
     Indication: HERPES VIRUS INFECTION
     Dosage: UNK

REACTIONS (5)
  - Headache [Unknown]
  - Facial paralysis [Unknown]
  - Hypoaesthesia [Unknown]
  - Pyrexia [Unknown]
  - Eye swelling [Unknown]
